FAERS Safety Report 7094115-X (Version None)
Quarter: 2010Q4

REPORT INFORMATION
  Report Type: 
  Country: None (occurrence: None)
  Receive Date: 20101110
  Receipt Date: 20101028
  Transmission Date: 20110411
  Serious: Yes (Life-Threatening, Hospitalization, Other)
  Sender: FDA-Public Use
  Company Number: US-JNJFOC-20101102461

PATIENT
  Age: 14 Year
  Sex: Female
  Weight: 62 kg

DRUGS (3)
  1. TOPIRAMATE [Suspect]
     Indication: BIPOLAR DISORDER
     Route: 048
  2. OLANZAPINE [Suspect]
     Indication: BIPOLAR DISORDER
     Route: 065
  3. OLANZAPINE [Suspect]
     Route: 065

REACTIONS (5)
  - ATELECTASIS [None]
  - COMA SCALE ABNORMAL [None]
  - HYPERTHERMIA [None]
  - RHABDOMYOLYSIS [None]
  - SHOCK [None]
